FAERS Safety Report 23902525 (Version 1)
Quarter: 2024Q2

REPORT INFORMATION
  Report Type: Spontaneous
  Country: US (occurrence: US)
  Receive Date: 20240527
  Receipt Date: 20240527
  Transmission Date: 20240716
  Serious: Yes (Hospitalization, Other)
  Sender: FDA-Public Use
  Company Number: US-STERISCIENCE B.V.-2024-ST-000679

PATIENT
  Age: 9 Month
  Sex: Male

DRUGS (2)
  1. VANCOMYCIN [Suspect]
     Active Substance: VANCOMYCIN
     Indication: Mediastinitis
     Dosage: TROUGH BASED IV VANCOMYCIN AT RENAL DOSING
     Route: 042
  2. CEFEPIME [Concomitant]
     Active Substance: CEFEPIME HYDROCHLORIDE
     Indication: Mediastinitis
     Dosage: UNK
     Route: 065

REACTIONS (2)
  - Toxicity to various agents [None]
  - Nephropathy toxic [Unknown]
